FAERS Safety Report 23616819 (Version 2)
Quarter: 2024Q1

REPORT INFORMATION
  Report Type: Spontaneous
  Country: FR (occurrence: FR)
  Receive Date: 20240311
  Receipt Date: 20240321
  Transmission Date: 20240410
  Serious: Yes (Hospitalization)
  Sender: FDA-Public Use
  Company Number: None

PATIENT
  Age: 65 Year
  Sex: Female

DRUGS (12)
  1. CAPECITABINE [Suspect]
     Active Substance: CAPECITABINE
     Indication: Osteoporotic fracture
     Dosage: THIRD-LINE TREATMENT?DAILY DOSE: 2600 MILLIGRAM
     Route: 048
  2. TRASTUZUMAB [Suspect]
     Active Substance: TRASTUZUMAB
     Indication: Product used for unknown indication
     Dates: start: 202005, end: 202104
  3. TRASTUZUMAB [Suspect]
     Active Substance: TRASTUZUMAB
     Indication: Product used for unknown indication
     Dosage: THIRD-LINE TREATMENT
     Route: 042
  4. ENOXAPARIN SODIUM [Suspect]
     Active Substance: ENOXAPARIN SODIUM
     Indication: Thrombosis prophylaxis
     Route: 058
  5. KEPPRA [Suspect]
     Active Substance: LEVETIRACETAM
     Indication: Epilepsy
     Route: 048
     Dates: start: 202011
  6. KEPPRA [Suspect]
     Active Substance: LEVETIRACETAM
     Indication: Epilepsy
     Route: 048
     Dates: start: 202204
  7. KEPPRA [Suspect]
     Active Substance: LEVETIRACETAM
     Indication: Epilepsy
     Route: 048
     Dates: start: 20221124
  8. KEPPRA [Suspect]
     Active Substance: LEVETIRACETAM
     Indication: Epilepsy
     Dosage: DAILY DOSE: 2500 MILLIGRAM
     Route: 048
     Dates: start: 20221207
  9. TUKYSA [Suspect]
     Active Substance: TUCATINIB
     Indication: Targeted cancer therapy
     Dosage: THIRD-LINE TREATMENT?DAILY DOSE: 600 MILLIGRAM
     Route: 048
  10. RACECADOTRIL [Suspect]
     Active Substance: RACECADOTRIL
     Indication: Prophylaxis against diarrhoea
     Route: 048
  11. IMODIUM [Suspect]
     Active Substance: LOPERAMIDE HYDROCHLORIDE
     Indication: Prophylaxis against diarrhoea
     Dosage: DAILY DOSE: 3 GRAM
     Route: 048
  12. ECONAZOLE [Concomitant]
     Active Substance: ECONAZOLE

REACTIONS (6)
  - Confusional state [Recovering/Resolving]
  - Epilepsy [Recovering/Resolving]
  - Product use in unapproved indication [Not Recovered/Not Resolved]
  - Status epilepticus [Recovering/Resolving]
  - Coma [Unknown]
  - Hypercapnia [Unknown]

NARRATIVE: CASE EVENT DATE: 20221114
